FAERS Safety Report 7030805-2 (Version None)
Quarter: 2010Q4

REPORT INFORMATION
  Report Type: 
  Country: None (occurrence: None)
  Receive Date: 20101006
  Receipt Date: 20100929
  Transmission Date: 20110411
  Serious: No
  Sender: FDA-Public Use
  Company Number: US-PFIZER INC-2010118261

PATIENT
  Sex: Female
  Weight: 54 kg

DRUGS (5)
  1. ARTHROTEC [Suspect]
     Indication: ARTHRALGIA
     Dosage: 75MG/200MCG, ONCE A DAY
     Route: 048
     Dates: start: 20100914
  2. ARTHROTEC [Suspect]
     Indication: BACK PAIN
  3. THYROID TAB [Concomitant]
     Dosage: 60 MG, UNK
  4. VYTORIN [Concomitant]
     Dosage: 10/20 MG, UNK
  5. GLIMEPIRIDE [Concomitant]
     Indication: DIABETES MELLITUS
     Dosage: 2 MG, UNK

REACTIONS (5)
  - CHOKING SENSATION [None]
  - DRUG INEFFECTIVE [None]
  - DYSPHAGIA [None]
  - FOREIGN BODY [None]
  - ODYNOPHAGIA [None]
